FAERS Safety Report 6888164-1 (Version None)
Quarter: 2010Q3

REPORT INFORMATION
  Report Type: 
  Country: None (occurrence: None)
  Receive Date: 20100730
  Receipt Date: 20100727
  Transmission Date: 20110219
  Serious: No
  Sender: FDA-Public Use
  Company Number: US-B.I. PHARMACEUTICALS,INC./RIDGEFIELD-2010-BP-08489BP

PATIENT
  Sex: Male
  Weight: 74.5 kg

DRUGS (4)
  1. AGGRENOX [Suspect]
  2. COUMADIN [Concomitant]
     Indication: ANTICOAGULANT THERAPY
     Dosage: 4 MG
     Route: 048
     Dates: start: 20100414
  3. MULTAQ [Concomitant]
     Indication: DRUG THERAPY
     Dosage: 800 MG
     Route: 048
     Dates: start: 20100714
  4. DIGOXIN [Concomitant]
     Indication: HEART RATE ABNORMAL
     Dosage: 0.25 MG
     Route: 048
     Dates: start: 20100413

REACTIONS (3)
  - COX-MAZE PROCEDURE [None]
  - MITRAL VALVE REPAIR [None]
  - TRANSIENT ISCHAEMIC ATTACK [None]
